FAERS Safety Report 14969966 (Version 2)
Quarter: 2018Q4

REPORT INFORMATION
  Report Type: Spontaneous
  Country: FR (occurrence: FR)
  Receive Date: 20180604
  Receipt Date: 20181227
  Transmission Date: 20190204
  Serious: Yes (Hospitalization)
  Sender: FDA-Public Use
  Company Number: FR-TEVA-2018-FR-901666

PATIENT
  Age: 47 Year
  Sex: Female
  Weight: 61 kg

DRUGS (10)
  1. HUMALOG MIX 25 100 UI/ML HUMAJECT, SUSPENSION INJECTABLE [Concomitant]
     Route: 065
  2. APROVEL 150 MG, COMPRIM? [Concomitant]
     Active Substance: IRBESARTAN
     Dates: end: 20180205
  3. GLUCOPHAGE 1000 MG, COMPRIM? PELLICUL? [Concomitant]
     Route: 065
  4. NOROXINE 400 MG, COMPRIM? ENROB? [Concomitant]
     Route: 065
  5. AMLOR 5 MG, G?LULE [Concomitant]
     Active Substance: AMLODIPINE BESYLATE
     Route: 065
  6. TRULICITY 0,75 MG, SOLUTION INJECTABLE EN STYLO PR?REMPLI [Concomitant]
     Route: 065
  7. OMEPRAZOLE. [Suspect]
     Active Substance: OMEPRAZOLE
     Indication: ABDOMINAL PAIN
     Route: 042
     Dates: start: 20180304, end: 20180306
  8. INEXIUM 20 MG, COMPRIM? GASTRO-R?SISTANT [Suspect]
     Active Substance: ESOMEPRAZOLE MAGNESIUM
     Indication: PRODUCT USED FOR UNKNOWN INDICATION
     Dosage: 20 MILLIGRAM DAILY;
     Route: 048
     Dates: start: 20180202, end: 20180205
  9. ESOMEPRAZOLE. [Suspect]
     Active Substance: ESOMEPRAZOLE MAGNESIUM
     Indication: PRODUCT USED FOR UNKNOWN INDICATION
     Dosage: 20 MILLIGRAM DAILY;
     Route: 048
     Dates: start: 20180306, end: 20180308
  10. ZOCOR [Concomitant]
     Active Substance: SIMVASTATIN
     Route: 065

REACTIONS (2)
  - Acute kidney injury [Recovered/Resolved]
  - Acute kidney injury [Recovered/Resolved]

NARRATIVE: CASE EVENT DATE: 20180205
